FAERS Safety Report 4573810-8 (Version None)
Quarter: 2005Q1

REPORT INFORMATION
  Report Type: 
  Country: None (occurrence: None)
  Receive Date: 20050203
  Receipt Date: 20050107
  Transmission Date: 20050727
  Serious: Yes (Hospitalization)
  Sender: FDA-Public Use
  Company Number: 1722

PATIENT
  Age: 69 Year
  Sex: Female
  Weight: 56.246 kg

DRUGS (6)
  1. AVINZA [Suspect]
     Dosage: 120 MG DAILY PO
     Route: 048
     Dates: start: 20040421
  2. AVINZA [Suspect]
     Dosage: 60 MG DAILY PO
     Route: 048
     Dates: end: 20041006
  3. ZICONOTIDE [Suspect]
     Dosage: 0.3 MCG
     Dates: start: 20040428
  4. HYDROCODONE/ACETAMINOPHEN (NORCO) [Suspect]
  5. VALIUM [Suspect]
  6. LEXAPRO [Suspect]

REACTIONS (2)
  - CHEST DISCOMFORT [None]
  - DRUG WITHDRAWAL SYNDROME [None]
